FAERS Safety Report 4583813-5 (Version None)
Quarter: 2005Q1

REPORT INFORMATION
  Report Type: 
  Country: None (occurrence: None)
  Receive Date: 20050211
  Receipt Date: 20050128
  Transmission Date: 20050727
  Serious: Yes (Hospitalization, Other)
  Sender: FDA-Public Use
  Company Number: 2005-0007989

PATIENT
  Age: 36 Year
  Sex: Male
  Weight: 79.8331 kg

DRUGS (3)
  1. TRUVADA [Suspect]
     Indication: HIV INFECTION
     Dosage: 1 DOSAGE FORMS, 1 IN 1 D, ORAL
     Route: 048
     Dates: start: 20041018, end: 20041209
  2. VIRAMUNE [Concomitant]
  3. PAXIL [Concomitant]

REACTIONS (1)
  - ANAEMIA [None]
